FAERS Safety Report 20842147 (Version 1)
Quarter: 2022Q2

REPORT INFORMATION
  Report Type: Spontaneous
  Country: US (occurrence: US)
  Receive Date: 20220518
  Receipt Date: 20220518
  Transmission Date: 20220720
  Serious: No
  Sender: FDA-Public Use
  Company Number: US-BRISTOL-MYERS SQUIBB COMPANY-2022-040938

PATIENT
  Age: 65 Year
  Sex: Female
  Weight: 87.9 kg

DRUGS (1)
  1. REVLIMID [Suspect]
     Active Substance: LENALIDOMIDE
     Indication: Plasma cell myeloma
     Dosage: 21DAYS ON , 7 DAYS OFF.
     Route: 048
     Dates: start: 2017

REACTIONS (1)
  - Oral herpes [Not Recovered/Not Resolved]
